FAERS Safety Report 10404079 (Version 1)
Quarter: 2014Q1

REPORT INFORMATION
  Report Type: Spontaneous
  Country: US (occurrence: None)
  Receive Date: 20130815
  Receipt Date: 20130815
  Transmission Date: 20141002
  Serious: Yes (Other)
  Sender: FDA-Public Use
  Company Number: ADR-2012-01310

PATIENT
  Sex: Female

DRUGS (4)
  1. BACLOFEN [Suspect]
     Indication: PAIN
  2. CLONIDINE [Concomitant]
  3. SUFENTANIL [Concomitant]
  4. DILAUDID [Concomitant]

REACTIONS (10)
  - Diarrhoea [None]
  - Malaise [None]
  - Overdose [None]
  - Nausea [None]
  - Cold sweat [None]
  - Drug withdrawal syndrome [None]
  - Asthenia [None]
  - Migraine [None]
  - Hypotonia [None]
  - Weight decreased [None]
